FAERS Safety Report 14046152 (Version 6)
Quarter: 2018Q3

REPORT INFORMATION
  Report Type: Report from Study
  Country: US (occurrence: US)
  Receive Date: 20171005
  Receipt Date: 20180724
  Transmission Date: 20181010
  Serious: Yes (Other)
  Sender: FDA-Public Use
  Company Number: US-JNJFOC-20170908398

PATIENT
  Sex: Male

DRUGS (20)
  1. TOPROL XL [Concomitant]
     Active Substance: METOPROLOL SUCCINATE
  2. NIFEDIPINE. [Concomitant]
     Active Substance: NIFEDIPINE
  3. TORSEMIDE. [Concomitant]
     Active Substance: TORSEMIDE
  4. IMBRUVICA [Suspect]
     Active Substance: IBRUTINIB
     Indication: CHRONIC LYMPHOCYTIC LEUKAEMIA
     Route: 048
     Dates: start: 20161203
  5. LISINOPRIL. [Concomitant]
     Active Substance: LISINOPRIL
  6. SIMVASTATIN. [Concomitant]
     Active Substance: SIMVASTATIN
  7. LOSARTAN. [Concomitant]
     Active Substance: LOSARTAN
  8. POTASSIUM CHLORIDE. [Concomitant]
     Active Substance: POTASSIUM CHLORIDE
  9. SPIRONOLACTONE. [Concomitant]
     Active Substance: SPIRONOLACTONE
  10. IMBRUVICA [Suspect]
     Active Substance: IBRUTINIB
     Indication: CHRONIC LYMPHOCYTIC LEUKAEMIA
     Dosage: 420 MG, QD
     Route: 048
     Dates: start: 20161103
  11. FISH OIL [Concomitant]
     Active Substance: FISH OIL
  12. BELSOMRA [Concomitant]
     Active Substance: SUVOREXANT
  13. KLONOPIN [Concomitant]
     Active Substance: CLONAZEPAM
  14. NORTRIPTYLINE [Concomitant]
     Active Substance: NORTRIPTYLINE
  15. VALIUM [Concomitant]
     Active Substance: DIAZEPAM
  16. BACTRIM DS [Concomitant]
     Active Substance: SULFAMETHOXAZOLE\TRIMETHOPRIM
  17. VITAMIN D [Concomitant]
     Active Substance: CHOLECALCIFEROL
  18. ACYCLOVIR. [Concomitant]
     Active Substance: ACYCLOVIR
  19. IMBRUVICA [Suspect]
     Active Substance: IBRUTINIB
     Indication: CHRONIC LYMPHOCYTIC LEUKAEMIA
     Dosage: 420 MG, QD
     Route: 048
     Dates: start: 20150428, end: 20180509
  20. CALCITRIOL. [Concomitant]
     Active Substance: CALCITRIOL

REACTIONS (4)
  - Suicidal ideation [Recovering/Resolving]
  - Depression [Recovering/Resolving]
  - Blood creatinine increased [Recovering/Resolving]
  - End stage renal disease [Unknown]

NARRATIVE: CASE EVENT DATE: 2015
